FAERS Safety Report 7459687-1 (Version None)
Quarter: 2011Q2

REPORT INFORMATION
  Report Type: 
  Country: None (occurrence: None)
  Receive Date: 20110505
  Receipt Date: 20110422
  Transmission Date: 20111010
  Serious: Yes (Other)
  Sender: FDA-Public Use
  Company Number: US-ELI_LILLY_AND_COMPANY-US201007005499

PATIENT
  Sex: Female
  Weight: 50.34 kg

DRUGS (20)
  1. FORTEO [Suspect]
     Dosage: 20 UG, DAILY (1/D)
  2. VITAMIN D [Concomitant]
  3. MULTI-VITAMIN [Concomitant]
  4. CALCIUM + VITAMIN D [Concomitant]
  5. METHOTREXATE [Concomitant]
  6. CIMETIDINE [Concomitant]
  7. FORTEO [Suspect]
     Dosage: 20 UG, DAILY (1/D)
  8. FORTEO [Suspect]
     Dosage: 20 UG, DAILY (1/D)
  9. CRANBERRY [Concomitant]
  10. DITROPAN [Concomitant]
  11. HYZAAR [Concomitant]
  12. AMITRIPTYLINE [Concomitant]
  13. COZAAR [Concomitant]
  14. COLCHICINE [Concomitant]
  15. FORTEO [Suspect]
     Dosage: 20 UG, QD
  16. FORTEO [Suspect]
     Dosage: 20 UG, DAILY (1/D)
  17. CALCIUM 600 PLUS VITAMIN D [Concomitant]
     Dosage: UNK, 2/D
  18. FORTEO [Suspect]
     Indication: OSTEOPOROSIS
     Dosage: 20 UG, DAILY (1/D)
     Dates: start: 20100315
  19. FOLIC ACID [Concomitant]
  20. IRON [Concomitant]

REACTIONS (18)
  - PAIN [None]
  - GAIT DISTURBANCE [None]
  - SKIN DISCOLOURATION [None]
  - BALANCE DISORDER [None]
  - MOBILITY DECREASED [None]
  - WEIGHT DECREASED [None]
  - SCRATCH [None]
  - SINUS CONGESTION [None]
  - ASTHENIA [None]
  - FACIAL BONES FRACTURE [None]
  - FALL [None]
  - SWELLING [None]
  - CONTUSION [None]
  - MALAISE [None]
  - CONCUSSION [None]
  - BLOOD CALCIUM INCREASED [None]
  - GOUT [None]
  - EXCORIATION [None]
